FAERS Safety Report 24266623 (Version 1)
Quarter: 2024Q3

REPORT INFORMATION
  Report Type: Spontaneous
  Country: US (occurrence: US)
  Receive Date: 20240830
  Receipt Date: 20240830
  Transmission Date: 20241016
  Serious: Yes (Death, Disabling)
  Sender: BLUEPRINT MEDICINES
  Company Number: US-Blueprint Medicines Corporation-SP-US-2024-001698

PATIENT
  Sex: Female

DRUGS (1)
  1. AYVAKIT [Suspect]
     Active Substance: AVAPRITINIB
     Indication: Gastrointestinal stromal tumour
     Route: 065
     Dates: start: 2022

REACTIONS (2)
  - Cognitive disorder [Not Recovered/Not Resolved]
  - Death [Fatal]
